FAERS Safety Report 5752004-4 (Version None)
Quarter: 2008Q2

REPORT INFORMATION
  Report Type: 
  Country: None (occurrence: None)
  Receive Date: 20080527
  Receipt Date: 20080521
  Transmission Date: 20081010
  Serious: Yes (Death)
  Sender: FDA-Public Use
  Company Number: 2008SP001196

PATIENT
  Age: 39 Year
  Sex: Male
  Weight: 78 kg

DRUGS (5)
  1. LUNESTA [Suspect]
     Dosage: ORAL
     Route: 048
     Dates: start: 20080419
  2. FENTANYL (100 UG/HR) [Suspect]
     Indication: PAIN
     Dosage: TRANSDERMAL
     Route: 062
     Dates: start: 20080419
  3. DIAZEPAM [Suspect]
     Route: 048
     Dates: start: 20080419
  4. DEPAKOTE ER [Suspect]
     Dosage: ORAL
     Route: 048
     Dates: start: 20080419
  5. CYMBALTA [Suspect]
     Dosage: ORAL
     Route: 048
     Dates: start: 20080419

REACTIONS (1)
  - CARDIO-RESPIRATORY ARREST [None]
